FAERS Safety Report 5924608-7 (Version None)
Quarter: 2008Q4

REPORT INFORMATION
  Report Type: 
  Country: None (occurrence: None)
  Receive Date: 20081016
  Receipt Date: 20081003
  Transmission Date: 20090506
  Serious: Yes (Death)
  Sender: FDA-Public Use
  Company Number: 08-001473

PATIENT

DRUGS (1)
  1. FEMCON FE [Suspect]
     Dosage: 0.4MG/35MCG, QD, TRANSPLACENTAL
     Route: 064
     Dates: start: 20080801, end: 20080905

REACTIONS (2)
  - DRUG EXPOSURE DURING PREGNANCY [None]
  - FOETAL HEART RATE ABNORMAL [None]
